FAERS Safety Report 9773546 (Version 1)
Quarter: 2013Q4

REPORT INFORMATION
  Report Type: Spontaneous
  Country: GB (occurrence: None)
  Receive Date: 20131217
  Receipt Date: 20131217
  Transmission Date: 20140711
  Serious: Yes (Hospitalization)
  Sender: FDA-Public Use
  Company Number: 2013000326

PATIENT
  Age: 62 Year
  Sex: Female

DRUGS (4)
  1. ACEON (PERINDOPRIL ERBUMINE) TABLET [Suspect]
     Indication: PRODUCT USED FOR UNKNOWN INDICATION
  2. LYRICA (PREGABALIN) [Suspect]
     Indication: NEURALGIA
     Dates: start: 2008
  3. FUROSEMIDE (FUROSEMIDE) [Concomitant]
  4. LIDOCAINE (LIDOCAINE) PATCH [Concomitant]

REACTIONS (11)
  - Cardiac failure congestive [None]
  - Cardiomyopathy [None]
  - Disturbance in attention [None]
  - Depression [None]
  - Drug interaction [None]
  - Skin irritation [None]
  - Drug ineffective [None]
  - Memory impairment [None]
  - Nerve injury [None]
  - Skin sensitisation [None]
  - Pain [None]
